FAERS Safety Report 7966447-1 (Version None)
Quarter: 2011Q4

REPORT INFORMATION
  Report Type: 
  Country: None (occurrence: None)
  Receive Date: 20111208
  Receipt Date: 20111123
  Transmission Date: 20120403
  Serious: Yes (Death, Hospitalization)
  Sender: FDA-Public Use
  Company Number: AT-ROCHE-1013571

PATIENT
  Age: 51 Year
  Sex: Male
  Weight: 100 kg

DRUGS (7)
  1. CALCIUM CARBONATE/CHOLECALCIFEROL [Concomitant]
     Dates: start: 20110831
  2. ALPRAZOLAM [Concomitant]
     Dates: start: 20110831
  3. DEXAMETHASONE [Suspect]
     Indication: METASTATIC MALIGNANT MELANOMA
     Dates: start: 20110814
  4. MAGNESIUM CARBONATE [Concomitant]
     Dates: start: 20110831
  5. VEMURAFENIB [Suspect]
     Indication: METASTATIC MALIGNANT MELANOMA
     Dosage: DATE OF LAST DOSE PRIOR TO SAE: 04/NOV/2011, TEMPORARILY INTERRUPTED.
     Route: 048
     Dates: start: 20111018, end: 20111104
  6. ESOMEPRAZOLE MAGNESIUM [Concomitant]
     Dates: start: 20110814
  7. MIRTAZAPINE [Concomitant]
     Dates: start: 20110831

REACTIONS (1)
  - PNEUMONIA [None]
